FAERS Safety Report 15696308 (Version 1)
Quarter: 2018Q4

REPORT INFORMATION
  Report Type: Other
  Country: CA (occurrence: CA)
  Receive Date: 20181206
  Receipt Date: 20181206
  Transmission Date: 20190205
  Serious: Yes (Other)
  Sender: FDA-Public Use
  Company Number: CA-HLSUS-2018-CA-001419

PATIENT
  Sex: Male

DRUGS (9)
  1. ABILIFY MAINTENA [Concomitant]
     Active Substance: ARIPIPRAZOLE
     Dosage: 300 MG EVERY 28 DAYS
     Route: 030
     Dates: start: 20171016
  2. TEVA GABAPENTIN [Concomitant]
     Active Substance: GABAPENTIN
     Dosage: 600 MG ONCE DAILY BED TIME
     Route: 048
     Dates: start: 20171016
  3. CLINDAMYCIN. [Concomitant]
     Active Substance: CLINDAMYCIN
     Dosage: 300 MG 1 CAPSULE QID
     Route: 048
     Dates: start: 20180206
  4. TEVA CEFADROXIL [Concomitant]
     Dosage: 500 MG 3 CAPSULES FOR EVERY 12 HOURS FOR 7 DAYS
     Route: 048
     Dates: start: 20180911
  5. BUPROPION. [Concomitant]
     Active Substance: BUPROPION
     Dosage: 150 MG X ONCE DAILY AT BREAKFAST
     Route: 048
     Dates: start: 20171016
  6. IBUPROFENE [Concomitant]
     Active Substance: IBUPROFEN
     Dosage: 600 MG TID FOR 10 DAYS
     Route: 048
     Dates: start: 20180925
  7. CLOZARIL [Suspect]
     Active Substance: CLOZAPINE
     Indication: SCHIZOPHRENIA
     Dosage: 300 MG ONCE DAILY (3 TABLETS ONCE A DAY AT BEDTIME)
     Route: 048
     Dates: start: 20141222
  8. OXAZEPAM. [Concomitant]
     Active Substance: OXAZEPAM
     Dosage: 30 MG X ONCE DAILY (1 HR BEFORE BEDTIME)
     Route: 048
     Dates: start: 20171016
  9. MINOCYCLINE [Concomitant]
     Active Substance: MINOCYCLINE\MINOCYCLINE HYDROCHLORIDE
     Dosage: 100 MG ONCE DAILY FOR 6 MONTHS
     Route: 048
     Dates: start: 20180911

REACTIONS (1)
  - Anal abscess [Unknown]
